FAERS Safety Report 19749824 (Version 2)
Quarter: 2022Q2

REPORT INFORMATION
  Report Type: Spontaneous
  Country: US (occurrence: US)
  Receive Date: 20210826
  Receipt Date: 20220610
  Transmission Date: 20220721
  Serious: Yes (Other)
  Sender: FDA-Public Use
  Company Number: US-PFIZER INC-2020296115

PATIENT
  Age: 81 Year
  Sex: Male

DRUGS (3)
  1. INLYTA [Suspect]
     Active Substance: AXITINIB
     Dosage: 2 MG, 2X/DAY
     Route: 048
  2. INLYTA [Suspect]
     Active Substance: AXITINIB
     Dosage: 1 MG
     Route: 048
     Dates: start: 20200101
  3. INLYTA [Suspect]
     Active Substance: AXITINIB
     Dosage: 1 MG
     Route: 048
     Dates: start: 20200520, end: 2022

REACTIONS (5)
  - Renal impairment [Unknown]
  - Protein total increased [Unknown]
  - Blood pressure increased [Unknown]
  - Pruritus [Unknown]
  - Product prescribing error [Unknown]
